FAERS Safety Report 20136307 (Version 1)
Quarter: 2021Q4

REPORT INFORMATION
  Report Type: Spontaneous
  Country: US (occurrence: None)
  Receive Date: 20211130
  Receipt Date: 20211130
  Transmission Date: 20220303
  Serious: Yes (Other)
  Sender: FDA-Public Use
  Company Number: None

PATIENT
  Age: 61 Year
  Sex: Male
  Weight: 90.72 kg

DRUGS (1)
  1. METOPROLOL SUCCINATE [Suspect]
     Active Substance: METOPROLOL SUCCINATE
     Indication: Blood pressure abnormal
     Dosage: FREQUENCY : DAILY;?
     Route: 048
     Dates: start: 20210614, end: 20211001

REACTIONS (3)
  - Dizziness [None]
  - Feeling jittery [None]
  - Heart rate irregular [None]

NARRATIVE: CASE EVENT DATE: 20211115
